FAERS Safety Report 19956397 (Version 1)
Quarter: 2021Q4

REPORT INFORMATION
  Report Type: Spontaneous
  Country: GB (occurrence: GB)
  Receive Date: 20211014
  Receipt Date: 20211014
  Transmission Date: 20220303
  Serious: Yes (Other)
  Sender: FDA-Public Use
  Company Number: None

PATIENT
  Age: 43 Year
  Sex: Female
  Weight: 45 kg

DRUGS (12)
  1. CLARITHROMYCIN [Suspect]
     Active Substance: CLARITHROMYCIN
     Indication: Product used for unknown indication
     Dosage: 5 MILLILITER, QID, TAKE TWO 5ML SPOONFULS TWICE DAILY. 250MG/5ML ORAL SUSPENSION
     Route: 048
     Dates: start: 20210923
  2. BENZYDAMINE HYDROCHLORIDE [Concomitant]
     Active Substance: BENZYDAMINE HYDROCHLORIDE
     Dosage: 10 MILLILITER, QID, USE 10ML L AS A MOUTH WASH FOUR TIMES A DAY
     Dates: start: 20210111
  3. DOXYCYCLINE [Concomitant]
     Active Substance: DOXYCYCLINE
     Dosage: 2 IMMEDIATELY AND THEN 1 DAILY
     Dates: start: 20211001
  4. FLUCLOXACILLIN [Concomitant]
     Active Substance: FLUCLOXACILLIN
     Dosage: 10 MILLILITER, QID, 2X5ML SPOON 4 TIMES/DAY
     Dates: start: 20211007
  5. POLYETHYLENE GLYCOL 3350\POTASSIUM CHLORIDE\SODIUM BICARBONATE\SODIUM [Concomitant]
     Active Substance: POLYETHYLENE GLYCOL 3350\POTASSIUM CHLORIDE\SODIUM BICARBONATE\SODIUM CHLORIDE
     Dosage: USE AS DIRECTED
     Dates: start: 20210327
  6. METRONIDAZOLE [Concomitant]
     Active Substance: METRONIDAZOLE
     Dosage: 1 DOSAGE FORM, BID, APPLY TWICE DAILY TO PEG SITE
     Dates: start: 20211007
  7. MORPHINE SULFATE [Concomitant]
     Active Substance: MORPHINE SULFATE
     Dosage: UNK UNK, PRN, USE AS DIRECTED
     Dates: start: 20210327
  8. ACETAMINOPHEN [Concomitant]
     Active Substance: ACETAMINOPHEN
     Dosage: 2 DOSAGE FORM, QID, TWO TO BE TAKEN FOUR TIMES DAILY
     Dates: start: 20210327
  9. PREGABALIN [Concomitant]
     Active Substance: PREGABALIN
     Dosage: TAKE ONE IN A MORNING, ONE AT LUNCHTIME AND THR...
     Dates: start: 20210701
  10. QVAR [Concomitant]
     Active Substance: BECLOMETHASONE DIPROPIONATE
     Dosage: 2 DOSAGE FORM, BID, 2 PUFFS TO BE TAKEN TWICE DAILY
     Dates: start: 20210327
  11. MORPHINE [Concomitant]
     Active Substance: MORPHINE
     Dosage: 1 DOSAGE FORM, TAKE 1 A TABLET AS REQUIRED FOR SEVERE PAIN
     Dates: start: 20210701
  12. VENTOLIN [Concomitant]
     Active Substance: ALBUTEROL SULFATE
     Dosage: 2 DOSAGE FORM, INHALE 2 DOSES AS NEEDED
     Dates: start: 20210701

REACTIONS (2)
  - Rash [Recovered/Resolved]
  - Dyspnoea [Recovered/Resolved]

NARRATIVE: CASE EVENT DATE: 20211001
